FAERS Safety Report 11004324 (Version 3)
Quarter: 2015Q2

REPORT INFORMATION
  Report Type: Spontaneous
  Country: IT (occurrence: IT)
  Receive Date: 20150409
  Receipt Date: 20150421
  Transmission Date: 20150821
  Serious: Yes (Death, Hospitalization, Other)
  Sender: FDA-Public Use
  Company Number: IT-SHIRE-IT201503024

PATIENT
  Age: 78 Year
  Sex: Male

DRUGS (1)
  1. VPRIV [Suspect]
     Active Substance: VELAGLUCERASE ALFA
     Indication: GAUCHER^S DISEASE
     Dosage: 60 IU/KG, OTHER (PER MONTH)
     Route: 041

REACTIONS (5)
  - Inappropriate schedule of drug administration [Unknown]
  - Gastrointestinal infection [Unknown]
  - Death [Fatal]
  - Cerebrovascular accident [Unknown]
  - Coma [Unknown]

NARRATIVE: CASE EVENT DATE: 2015
